FAERS Safety Report 17895891 (Version 2)
Quarter: 2020Q3

REPORT INFORMATION
  Report Type: Spontaneous
  Country: US (occurrence: US)
  Receive Date: 20200615
  Receipt Date: 20200721
  Transmission Date: 20201103
  Serious: No
  Sender: FDA-Public Use
  Company Number: US-JNJFOC-20200617421

PATIENT
  Age: 33 Year
  Sex: Female

DRUGS (7)
  1. KLONOPIN [Concomitant]
     Active Substance: CLONAZEPAM
     Indication: INSOMNIA
  2. STELARA [Suspect]
     Active Substance: USTEKINUMAB
     Indication: DERMATITIS EXFOLIATIVE GENERALISED
  3. ATENOLOL. [Concomitant]
     Active Substance: ATENOLOL
     Indication: SINUS TACHYCARDIA
     Dosage: PRN
     Route: 048
  4. KLONOPIN [Concomitant]
     Active Substance: CLONAZEPAM
     Indication: ANXIETY
     Dosage: PRN
     Route: 048
  5. TRAMADOL                           /00599202/ [Concomitant]
     Active Substance: TRAMADOL
     Indication: PSORIATIC ARTHROPATHY
     Route: 048
  6. STELARA [Suspect]
     Active Substance: USTEKINUMAB
     Indication: PSORIATIC ARTHROPATHY
     Route: 030
  7. CLOBETASOL PROPIONATE. [Concomitant]
     Active Substance: CLOBETASOL PROPIONATE
     Indication: PSORIATIC ARTHROPATHY
     Route: 061

REACTIONS (6)
  - Incorrect route of product administration [Unknown]
  - Psoriasis [Unknown]
  - Device deployment issue [Unknown]
  - Arthritis [Unknown]
  - Accidental exposure to product [Unknown]
  - Off label use [Unknown]

NARRATIVE: CASE EVENT DATE: 20200611
